FAERS Safety Report 23080375 (Version 4)
Quarter: 2024Q1

REPORT INFORMATION
  Report Type: Spontaneous
  Country: JP (occurrence: None)
  Receive Date: 20231018
  Receipt Date: 20240220
  Transmission Date: 20240410
  Serious: Yes (Death, Life-Threatening, Hospitalization, Disabling, Other)
  Sender: FDA-Public Use
  Company Number: 2023A233614

PATIENT
  Age: 72 Year
  Sex: Male
  Weight: 55 kg

DRUGS (3)
  1. IMFINZI [Suspect]
     Active Substance: DURVALUMAB
     Indication: Bile duct cancer
     Route: 041
     Dates: start: 20230510, end: 20230531
  2. CISPLATIN [Concomitant]
     Active Substance: CISPLATIN
     Indication: Bile duct cancer
     Route: 041
     Dates: start: 20230510, end: 20230531
  3. GEMCITABINE HYDROCHLORIDE [Concomitant]
     Active Substance: GEMCITABINE HYDROCHLORIDE
     Indication: Bile duct cancer
     Route: 041
     Dates: start: 20230510, end: 20230531

REACTIONS (17)
  - Jugular vein distension [Unknown]
  - Circulatory collapse [Unknown]
  - Immune-mediated myocarditis [Not Recovered/Not Resolved]
  - Cardiogenic shock [Unknown]
  - Tachycardia [Recovering/Resolving]
  - Respiratory failure [Unknown]
  - Intestinal gangrene [Not Recovered/Not Resolved]
  - Anal infection [Not Recovered/Not Resolved]
  - Impaired healing [Not Recovered/Not Resolved]
  - Cardio-respiratory arrest [Unknown]
  - Intestinal ischaemia [Recovered/Resolved with Sequelae]
  - Necrotising fasciitis [Fatal]
  - Wheezing [Unknown]
  - Peripheral coldness [Unknown]
  - Hyperhidrosis [Unknown]
  - Cardiac dysfunction [Unknown]
  - Pulmonary congestion [Unknown]

NARRATIVE: CASE EVENT DATE: 20230101
